FAERS Safety Report 8919458 (Version 1)
Quarter: 2012Q4

REPORT INFORMATION
  Report Type: 
  Country: DE (occurrence: DE)
  Receive Date: 20121121
  Receipt Date: 20121121
  Transmission Date: 20130627
  Serious: Yes (Life-Threatening, Hospitalization)
  Sender: FDA-Public Use
  Company Number: DE-B.I. PHARMACEUTICALS,INC./RIDGEFIELD-2012-DE-02731DE

PATIENT
  Age: 72 Year
  Sex: Female

DRUGS (1)
  1. PRADAXA [Suspect]
     Indication: ATRIAL FIBRILLATION
     Dates: end: 20121105

REACTIONS (4)
  - Subarachnoid haemorrhage [Unknown]
  - Haemorrhage [Unknown]
  - Retroperitoneal haemorrhage [Unknown]
  - Coagulation test abnormal [Unknown]
